FAERS Safety Report 10428172 (Version 4)
Quarter: 2014Q4

REPORT INFORMATION
  Report Type: Spontaneous
  Country: JP (occurrence: JP)
  Receive Date: 20140903
  Receipt Date: 20141217
  Transmission Date: 20150528
  Serious: Yes (Hospitalization)
  Sender: FDA-Public Use
  Company Number: JP-ROCHE-1457671

PATIENT
  Age: 84 Year
  Sex: Male
  Weight: 45 kg

DRUGS (2)
  1. LUCENTIS [Suspect]
     Active Substance: RANIBIZUMAB
     Dosage: 2.3 MG/0.23 ML, RIGHT EYE
     Route: 050
     Dates: start: 20140818, end: 20140818
  2. LUCENTIS [Suspect]
     Active Substance: RANIBIZUMAB
     Indication: AGE-RELATED MACULAR DEGENERATION
     Route: 050
     Dates: start: 20120113, end: 20120113

REACTIONS (1)
  - Angina pectoris [Recovering/Resolving]

NARRATIVE: CASE EVENT DATE: 20140819
